FAERS Safety Report 7369513-7 (Version None)
Quarter: 2011Q1

REPORT INFORMATION
  Report Type: 
  Country: None (occurrence: None)
  Receive Date: 20110323
  Receipt Date: 20110315
  Transmission Date: 20110831
  Serious: Yes (Other)
  Sender: FDA-Public Use
  Company Number: NL-ASTRAZENECA-2011SE14646

PATIENT
  Age: 29 Year
  Sex: Male
  Weight: 87 kg

DRUGS (2)
  1. CLOMIPRAMINE [Suspect]
     Route: 048
  2. SEROQUEL XR [Suspect]
     Route: 048
     Dates: start: 20070701

REACTIONS (3)
  - WEIGHT INCREASED [None]
  - HYPERHIDROSIS [None]
  - BULIMIA NERVOSA [None]
